FAERS Safety Report 19357438 (Version 2)
Quarter: 2021Q3

REPORT INFORMATION
  Report Type: Spontaneous
  Country: AT (occurrence: AT)
  Receive Date: 20210601
  Receipt Date: 20210714
  Transmission Date: 20211014
  Serious: Yes (Hospitalization, Other)
  Sender: FDA-Public Use
  Company Number: AT-AMGEN-AUTSP2021082810

PATIENT
  Age: 34 Year
  Sex: Male

DRUGS (1)
  1. ADALIMUMAB [Suspect]
     Active Substance: ADALIMUMAB
     Indication: COLITIS ULCERATIVE
     Dosage: UNK
     Route: 058
     Dates: start: 20201021, end: 202011

REACTIONS (6)
  - Clostridium test positive [Unknown]
  - Colitis [Recovering/Resolving]
  - Cytomegalovirus test positive [Recovering/Resolving]
  - General physical health deterioration [Unknown]
  - Dysplasia [Unknown]
  - Colitis ulcerative [Recovering/Resolving]

NARRATIVE: CASE EVENT DATE: 2020
